FAERS Safety Report 24309047 (Version 1)
Quarter: 2024Q3

REPORT INFORMATION
  Report Type: Spontaneous
  Country: GB (occurrence: GB)
  Receive Date: 20240911
  Receipt Date: 20240911
  Transmission Date: 20241016
  Serious: Yes (Other)
  Sender: ELI LILLY AND CO
  Company Number: None

PATIENT
  Age: 43 Year
  Sex: Female

DRUGS (1)
  1. BARICITINIB [Suspect]
     Active Substance: BARICITINIB
     Indication: Eczema
     Dosage: 2 MG, UNKNOWN
     Route: 065
     Dates: start: 20240624, end: 20240730

REACTIONS (2)
  - Vaginal haemorrhage [Recovered/Resolved]
  - Cystitis [Recovered/Resolved]
